FAERS Safety Report 10471108 (Version 2)
Quarter: 2014Q3

REPORT INFORMATION
  Report Type: Report from Study
  Country: JP (occurrence: JP)
  Receive Date: 20140923
  Receipt Date: 20140923
  Transmission Date: 20150326
  Serious: Yes (Hospitalization)
  Sender: FDA-Public Use
  Company Number: JP-BRISTOL-MYERS SQUIBB COMPANY-17051616

PATIENT
  Age: 47 Year
  Sex: Female

DRUGS (20)
  1. PREDNISOLONE. [Suspect]
     Active Substance: PREDNISOLONE
     Dates: start: 20090925
  2. TRYPTANOL [Concomitant]
     Active Substance: AMITRIPTYLINE
     Dates: start: 20120619, end: 20130521
  3. LYRICA [Concomitant]
     Active Substance: PREGABALIN
     Dates: start: 20120313, end: 20130521
  4. PROCYLIN [Concomitant]
     Active Substance: BERAPROST SODIUM
     Dates: start: 20090904
  5. MIZORIBINE [Concomitant]
     Active Substance: MIZORIBINE
  6. GASMOTIN [Concomitant]
     Active Substance: MOSAPRIDE CITRATE
     Indication: PROPHYLAXIS
     Dates: start: 20090904
  7. CELECOXIB. [Concomitant]
     Active Substance: CELECOXIB
     Dates: start: 20100910
  8. HUSCODE [Concomitant]
     Active Substance: CHLORPHENIRAMINE MALEAT\DIHYDROCODEINE PHOSPHATE\METHYLEPHEDRINE HYDROCHLORIDE, DL-
     Dates: start: 20130426
  9. NEXIUM [Concomitant]
     Active Substance: ESOMEPRAZOLE MAGNESIUM
     Dates: start: 20130130
  10. CEFZON [Concomitant]
     Active Substance: CEFDINIR
  11. FLOMOX [Concomitant]
     Active Substance: CEFCAPENE PIVOXIL HYDROCHLORIDE HYDRATE
  12. SILVER SULFADIAZENE [Concomitant]
     Active Substance: SILVER SULFADIAZINE
  13. ORENCIA [Suspect]
     Active Substance: ABATACEPT
     Indication: RHEUMATOID ARTHRITIS
     Dosage: LAST DOSE ON 20SEP12,DRIP INFUSION
     Route: 041
     Dates: start: 20120726
  14. BONALON [Concomitant]
     Active Substance: ALENDRONATE SODIUM
     Indication: PROPHYLAXIS
     Dates: start: 20090925
  15. PARIET [Concomitant]
     Active Substance: RABEPRAZOLE SODIUM
     Indication: PROPHYLAXIS
     Dates: start: 20090904, end: 20130129
  16. LOXONIN [Concomitant]
     Active Substance: LOXOPROFEN SODIUM
     Dates: start: 20091023, end: 20130718
  17. TAMIFLU [Concomitant]
     Active Substance: OSELTAMIVIR PHOSPHATE
  18. MUCOSTA [Concomitant]
     Active Substance: REBAMIPIDE
     Indication: PROPHYLAXIS
     Dates: start: 20100910
  19. CEFAZOLIN SODIUM. [Concomitant]
     Active Substance: CEFAZOLIN SODIUM
  20. TACROLIMUS. [Concomitant]
     Active Substance: TACROLIMUS

REACTIONS (5)
  - Pyelonephritis [Recovered/Resolved]
  - Skin ulcer [Recovered/Resolved]
  - Influenza [Recovered/Resolved]
  - Spondylolisthesis [Not Recovered/Not Resolved]
  - Failure to anastomose [Recovered/Resolved]

NARRATIVE: CASE EVENT DATE: 20121008
